FAERS Safety Report 20246448 (Version 1)
Quarter: 2021Q4

REPORT INFORMATION
  Report Type: Spontaneous
  Country: US (occurrence: US)
  Receive Date: 20211229
  Receipt Date: 20211229
  Transmission Date: 20220304
  Serious: Yes (Hospitalization, Other)
  Sender: FDA-Public Use
  Company Number: US-SA-SAC20211226000332

PATIENT
  Age: 59 Year
  Sex: Female

DRUGS (2)
  1. DUPIXENT [Suspect]
     Active Substance: DUPILUMAB
     Indication: Asthma
     Dosage: 150 MG/ML, QOW
     Route: 058
  2. XOLAIR [Concomitant]
     Active Substance: OMALIZUMAB
     Dosage: 150MG

REACTIONS (2)
  - Diverticulitis [Unknown]
  - Product use issue [Unknown]
